FAERS Safety Report 21643589 (Version 1)
Quarter: 2022Q4

REPORT INFORMATION
  Report Type: Spontaneous
  Country: US (occurrence: None)
  Receive Date: 20221123
  Receipt Date: 20221123
  Transmission Date: 20230112
  Serious: No
  Sender: FDA-Public Use
  Company Number: None

PATIENT
  Age: 56 Year
  Sex: Female
  Weight: 57.15 kg

DRUGS (1)
  1. NATURE-THROID [Suspect]
     Active Substance: THYROID, PORCINE
     Indication: Hypothyroidism
     Dosage: 130 MG 1 X DAY ?

REACTIONS (6)
  - Nausea [None]
  - Recalled product administered [None]
  - Abdominal pain upper [None]
  - Alopecia [None]
  - Feeling cold [None]
  - Blood parathyroid hormone increased [None]

NARRATIVE: CASE EVENT DATE: 20201001
